FAERS Safety Report 9614001 (Version 1)
Quarter: 2013Q4

REPORT INFORMATION
  Report Type: Spontaneous
  Country: BR (occurrence: BR)
  Receive Date: 20131011
  Receipt Date: 20131011
  Transmission Date: 20140711
  Serious: Yes (Hospitalization)
  Sender: FDA-Public Use
  Company Number: BR-ASTRAZENECA-2013SE74521

PATIENT
  Sex: Female

DRUGS (7)
  1. BRILINTA [Suspect]
     Route: 048
     Dates: start: 201211, end: 20130920
  2. CONCOR [Concomitant]
  3. MONOCORDIL [Concomitant]
     Indication: CARDIAC DISORDER
  4. HUMAN INSULIN [Concomitant]
     Indication: DIABETES MELLITUS
  5. REGULAR INSULIN [Concomitant]
     Indication: DIABETES MELLITUS
  6. LOSARTAN [Concomitant]
     Indication: BLOOD PRESSURE ABNORMAL
  7. ASA [Concomitant]

REACTIONS (3)
  - Pulmonary oedema [Unknown]
  - Pain in extremity [Not Recovered/Not Resolved]
  - Dyspnoea [Unknown]
